FAERS Safety Report 9460122 (Version 2)
Quarter: 2013Q3

REPORT INFORMATION
  Report Type: Spontaneous
  Country: FR (occurrence: FR)
  Receive Date: 20130815
  Receipt Date: 20130902
  Transmission Date: 20140515
  Serious: Yes (Other)
  Sender: FDA-Public Use
  Company Number: FR-PFIZER INC-2013237134

PATIENT
  Age: 36 Year
  Sex: Female

DRUGS (1)
  1. NICORETTE SPRAY [Suspect]
     Indication: SMOKING CESSATION THERAPY
     Dosage: 10 MG 3 DOSE ONCE
     Route: 002
     Dates: start: 20130710, end: 20130710

REACTIONS (4)
  - Asthmatic crisis [Recovered/Resolved]
  - Tongue oedema [Recovered/Resolved]
  - Aphthous stomatitis [Unknown]
  - Palpitations [Recovered/Resolved]
